FAERS Safety Report 19867288 (Version 1)
Quarter: 2021Q3

REPORT INFORMATION
  Report Type: Spontaneous
  Country: ES (occurrence: ES)
  Receive Date: 20210922
  Receipt Date: 20210922
  Transmission Date: 20211014
  Serious: Yes (Hospitalization, Other)
  Sender: FDA-Public Use
  Company Number: ES-AMGEN-ESPSP2021144027

PATIENT

DRUGS (1)
  1. PANITUMUMAB [Suspect]
     Active Substance: PANITUMUMAB
     Indication: PRODUCT USED FOR UNKNOWN INDICATION
     Dosage: UNK
     Route: 065

REACTIONS (15)
  - Cytopenia [Unknown]
  - Toxicity to various agents [Unknown]
  - Diarrhoea [Unknown]
  - Dizziness [Unknown]
  - Deep vein thrombosis [Unknown]
  - Mucosal inflammation [Unknown]
  - Dermatitis acneiform [Unknown]
  - Pyrexia [Unknown]
  - Pulmonary embolism [Unknown]
  - Drug ineffective [Unknown]
  - Neuropathy peripheral [Unknown]
  - Renal failure [Unknown]
  - Asthenia [Unknown]
  - Hepatitis [Unknown]
  - General physical health deterioration [Unknown]
